FAERS Safety Report 6098682-4 (Version None)
Quarter: 2009Q1

REPORT INFORMATION
  Report Type: 
  Country: None (occurrence: None)
  Receive Date: 20090302
  Receipt Date: 20090219
  Transmission Date: 20090719
  Serious: Yes (Other)
  Sender: FDA-Public Use
  Company Number: ZA-JNJFOC-20090203213

PATIENT
  Age: 37 Year
  Sex: Male
  Weight: 100 kg

DRUGS (4)
  1. REVELLEX [Suspect]
     Dosage: RECEIVED A TOTAL OF 10 INFUSIONS
     Route: 042
  2. REVELLEX [Suspect]
     Indication: ANKYLOSING SPONDYLITIS
     Dosage: RECEIVED A TOTAL OF 10 INFUSIONS
     Route: 042
  3. METHOTREXATE [Concomitant]
  4. LIPITOR [Concomitant]

REACTIONS (5)
  - DEMYELINATION [None]
  - HEADACHE [None]
  - LABYRINTHITIS [None]
  - MUSCULOSKELETAL PAIN [None]
  - RADICULITIS BRACHIAL [None]
